FAERS Safety Report 18234968 (Version 1)
Quarter: 2020Q3

REPORT INFORMATION
  Report Type: Spontaneous
  Country: US (occurrence: US)
  Receive Date: 20200905
  Receipt Date: 20200905
  Transmission Date: 20201103
  Serious: Yes (Other)
  Sender: FDA-Public Use
  Company Number: US-SUN PHARMACEUTICAL INDUSTRIES LTD-2019R1-221316

PATIENT
  Age: 46 Year
  Sex: Male
  Weight: 104.31 kg

DRUGS (1)
  1. CEFALEXIN [Suspect]
     Active Substance: CEPHALEXIN
     Indication: ANTIBIOTIC THERAPY
     Dosage: 250 MILLIGRAM, TID
     Route: 048

REACTIONS (6)
  - Depression [Unknown]
  - Feeling abnormal [Unknown]
  - Mental status changes [Unknown]
  - Dysbiosis [Unknown]
  - Fungal infection [Unknown]
  - Gut fermentation syndrome [Recovered/Resolved]
